FAERS Safety Report 8363481-7 (Version None)
Quarter: 2012Q1

REPORT INFORMATION
  Report Type: 
  Country: None (occurrence: None)
  Receive Date: 20120323
  Receipt Date: 20110411
  Transmission Date: 20120608
  Serious: Yes (Hospitalization)
  Sender: FDA-Public Use
  Company Number: 163-21880-11041480

PATIENT
  Age: 71 Year
  Sex: Male
  Weight: 118.8 kg

DRUGS (13)
  1. CENTRUM (CENTRUM) [Concomitant]
  2. REVLIMID [Suspect]
     Indication: MULTIPLE MYELOMA
     Dosage: 25 MG, 1 IN 1 D, PO
     Route: 048
     Dates: start: 20110101, end: 20110331
  3. CALCIU + D (VITACAL) [Concomitant]
  4. ENALAPRIL MALEATE [Concomitant]
  5. POTASSIUM CHLORIDE [Concomitant]
  6. COREG [Concomitant]
  7. FUROSEMIDE [Concomitant]
  8. PRAVASTATIN [Concomitant]
  9. AMITRIPTYLINE HCL [Concomitant]
  10. ALBUTEROL [Concomitant]
  11. VENTOLIN HFA (SALBUTAMOL SULFATE) [Concomitant]
  12. DEXAMETHASONE [Concomitant]
  13. CITALOPRAM HYDROBROMIDE [Concomitant]

REACTIONS (1)
  - PNEUMONIA [None]
